FAERS Safety Report 13046147 (Version 1)
Quarter: 2016Q4

REPORT INFORMATION
  Report Type: Spontaneous
  Country: US (occurrence: US)
  Receive Date: 20161220
  Receipt Date: 20161220
  Transmission Date: 20170207
  Serious: No
  Sender: FDA-Public Use
  Company Number: US-INTERPRAG-PM-OCA2016-00083

PATIENT

DRUGS (8)
  1. OCALIVA [Suspect]
     Active Substance: OBETICHOLIC ACID
     Dosage: 5 MG, WEEKLY
     Route: 048
     Dates: start: 2016, end: 2016
  2. CALCIUM GLUCONATE. [Concomitant]
     Active Substance: CALCIUM GLUCONATE
     Dosage: 500 MG, UNK
  3. VITAMIN D3 [Concomitant]
     Active Substance: CHOLECALCIFEROL
     Dosage: 2000 IU, UNK
  4. OCALIVA [Suspect]
     Active Substance: OBETICHOLIC ACID
     Indication: BILIARY CIRRHOSIS PRIMARY
     Dosage: 5 MG, QD
     Route: 048
     Dates: start: 20160716, end: 2016
  5. VITAMIN D [Concomitant]
     Active Substance: CHOLECALCIFEROL
  6. FENOFIBRATE. [Concomitant]
     Active Substance: FENOFIBRATE
  7. VITAMIN E                          /00110501/ [Concomitant]
     Active Substance: TOCOPHEROL
     Dosage: 400 IU, UNK
  8. OCALIVA [Suspect]
     Active Substance: OBETICHOLIC ACID
     Dosage: 5 MG, WEEKLY
     Route: 048
     Dates: start: 2016

REACTIONS (4)
  - Wound [Recovered/Resolved]
  - Pruritus [Unknown]
  - Haemorrhage [Recovered/Resolved]
  - Overdose [Unknown]

NARRATIVE: CASE EVENT DATE: 2016
